FAERS Safety Report 8918861 (Version 1)
Quarter: 2012Q4

REPORT INFORMATION
  Report Type: Spontaneous
  Country: US (occurrence: None)
  Receive Date: 20121115
  Receipt Date: 20121115
  Transmission Date: 20130627
  Serious: No
  Sender: FDA-Public Use
  Company Number: None

PATIENT
  Age: 27 Year
  Sex: Male
  Weight: 98.1 kg

DRUGS (1)
  1. VILAZODONE [Suspect]
     Indication: PANIC DISORDER
     Dosage: 40 MG  EVERY DAY  PO
     Route: 048
     Dates: start: 20121018, end: 20121026

REACTIONS (3)
  - Sedation [None]
  - Anxiety [None]
  - Fear [None]
